FAERS Safety Report 8538931-3 (Version None)
Quarter: 2012Q3

REPORT INFORMATION
  Report Type: 
  Country: None (occurrence: None)
  Receive Date: 20120716
  Receipt Date: 20120704
  Transmission Date: 20120928
  Serious: Yes (Other)
  Sender: FDA-Public Use
  Company Number: DSA_58434_2012

PATIENT

DRUGS (3)
  1. DOCETAXEL [Suspect]
     Indication: OESOPHAGEAL CARCINOMA
     Dosage: 70 MG/M2, 1/3 WEEK, INTRAVENOUS DRIP
     Route: 041
  2. CISPLATIN [Suspect]
     Indication: OESOPHAGEAL CARCINOMA
     Dosage: 70 MG/M2, 1/3  WEEK, INTRAVENOUS DRIP
     Route: 041
  3. FLUOROURACIL [Suspect]
     Indication: OESOPHAGEAL CARCINOMA
     Dosage: 750 MG/M2, INTRAVENOUS
     Route: 042

REACTIONS (2)
  - HAEMATOTOXICITY [None]
  - FEBRILE NEUTROPENIA [None]
